FAERS Safety Report 8058445-7 (Version None)
Quarter: 2012Q1

REPORT INFORMATION
  Report Type: 
  Country: None (occurrence: None)
  Receive Date: 20120120
  Receipt Date: 20120117
  Transmission Date: 20120608
  Serious: Yes (Other)
  Sender: FDA-Public Use
  Company Number: US-PFIZER INC-2012013344

PATIENT
  Sex: Female
  Weight: 77.098 kg

DRUGS (3)
  1. SYNTHROID [Concomitant]
     Indication: HYPOTHYROIDISM
     Dosage: UNK
  2. ZOLOFT [Suspect]
     Dosage: 150 MG, 1X/DAY
     Route: 048
  3. ZOLOFT [Suspect]
     Indication: ANXIETY
     Dosage: 100 MG, 1X/DAY
     Route: 048
     Dates: start: 19920101

REACTIONS (2)
  - APLASTIC ANAEMIA [None]
  - MYELODYSPLASTIC SYNDROME [None]
